FAERS Safety Report 5355527-5 (Version None)
Quarter: 2007Q2

REPORT INFORMATION
  Report Type: 
  Country: None (occurrence: None)
  Receive Date: 20070530
  Receipt Date: 20061005
  Transmission Date: 20071010
  Serious: Yes (Other)
  Sender: FDA-Public Use
  Company Number: US200609001838

PATIENT
  Age: 44 Year
  Sex: Female
  Weight: 90.7 kg

DRUGS (3)
  1. ZYPREXA [Suspect]
  2. DEPAKOTE [Concomitant]
  3. LITHIUM CARBONATE [Concomitant]

REACTIONS (2)
  - DIABETES MELLITUS [None]
  - DIABETIC KETOACIDOSIS [None]
